FAERS Safety Report 7756035-4 (Version None)
Quarter: 2011Q3

REPORT INFORMATION
  Report Type: 
  Country: None (occurrence: None)
  Receive Date: 20110908
  Receipt Date: 20110831
  Transmission Date: 20111222
  Serious: Yes (Other)
  Sender: FDA-Public Use
  Company Number: 2011029699

PATIENT
  Sex: Female

DRUGS (2)
  1. BERINERT [Suspect]
     Indication: HEREDITARY ANGIOEDEMA
     Dosage: (INTRAVENOUS (NOT OTHERWISE SPECIFIED)
     Route: 042
  2. BERINERT [Suspect]
     Indication: ENZYME ABNORMALITY
     Dosage: (INTRAVENOUS (NOT OTHERWISE SPECIFIED)
     Route: 042

REACTIONS (9)
  - PARAESTHESIA ORAL [None]
  - THROAT TIGHTNESS [None]
  - ULCER [None]
  - DYSPHONIA [None]
  - PRESYNCOPE [None]
  - INFLUENZA LIKE ILLNESS [None]
  - CHEST PAIN [None]
  - DYSPNOEA [None]
  - PARAESTHESIA [None]
